FAERS Safety Report 7620789-8 (Version None)
Quarter: 2011Q3

REPORT INFORMATION
  Report Type: 
  Country: None (occurrence: None)
  Receive Date: 20110719
  Receipt Date: 20110708
  Transmission Date: 20111222
  Serious: Yes (Other)
  Sender: FDA-Public Use
  Company Number: PHHY2011US62765

PATIENT
  Age: 13 Month
  Sex: Male

DRUGS (2)
  1. GLIPIZIDE [Suspect]
     Dosage: 50 MG, Q4H
  2. ACETAMINOPHEN [Suspect]
     Dosage: UNK

REACTIONS (4)
  - TOXICITY TO VARIOUS AGENTS [None]
  - CONVULSION [None]
  - HYPOGLYCAEMIA [None]
  - WRONG DRUG ADMINISTERED [None]
